FAERS Safety Report 6862093-1 (Version None)
Quarter: 2010Q3

REPORT INFORMATION
  Report Type: 
  Country: None (occurrence: None)
  Receive Date: 20100721
  Receipt Date: 20100708
  Transmission Date: 20110219
  Serious: Yes (Death, Disabling)
  Sender: FDA-Public Use
  Company Number: GB-ELI_LILLY_AND_COMPANY-GB201007001894

PATIENT
  Age: 32 Year
  Sex: Male
  Weight: 90 kg

DRUGS (1)
  1. PROZAC [Suspect]
     Indication: DEPRESSION
     Dosage: 20 MG, EVERY 12 HOURS
     Route: 048
     Dates: start: 20100622, end: 20100706

REACTIONS (4)
  - DEATH [None]
  - FEELING OF DESPAIR [None]
  - HYPERHIDROSIS [None]
  - INAPPROPRIATE AFFECT [None]
